FAERS Safety Report 9259489 (Version 2)
Quarter: 2013Q2

REPORT INFORMATION
  Report Type: Spontaneous
  Country: CA (occurrence: CA)
  Receive Date: 20130428
  Receipt Date: 20130509
  Transmission Date: 20140414
  Serious: Yes (Death, Hospitalization, Other)
  Sender: FDA-Public Use
  Company Number: CA-AMGEN-CANSP2013028115

PATIENT
  Age: 67 Year
  Sex: Male
  Weight: 76.2 kg

DRUGS (19)
  1. PEGFILGRASTIM [Suspect]
     Indication: CHRONIC LYMPHOCYTIC LEUKAEMIA
     Dosage: UNK
     Route: 042
     Dates: start: 201303
  2. RITUXAN [Suspect]
     Indication: CHRONIC LYMPHOCYTIC LEUKAEMIA
     Dosage: UNK
     Route: 042
     Dates: start: 2012, end: 201209
  3. FLUDARABINE /01004602/ [Suspect]
     Indication: CHRONIC LYMPHOCYTIC LEUKAEMIA
     Dosage: UNK
     Route: 042
     Dates: start: 2012, end: 201209
  4. CYCLOPHOSPHAMIDE [Suspect]
     Indication: CHRONIC LYMPHOCYTIC LEUKAEMIA
     Dosage: UNK
     Route: 042
     Dates: start: 2012, end: 201209
  5. VINCRISTINE [Suspect]
     Indication: CHRONIC LYMPHOCYTIC LEUKAEMIA
     Dosage: UNK
     Route: 042
     Dates: start: 201212, end: 201303
  6. BLEOMYCIN [Suspect]
     Indication: CHRONIC LYMPHOCYTIC LEUKAEMIA
     Dosage: UNK
     Route: 042
     Dates: start: 201212, end: 201303
  7. PREDNISONE [Suspect]
     Indication: CHRONIC LYMPHOCYTIC LEUKAEMIA
     Dosage: UNK
     Route: 042
     Dates: start: 201212, end: 201303
  8. BENDAMUSTINE [Suspect]
     Indication: CHRONIC LYMPHOCYTIC LEUKAEMIA
     Dosage: UNK
     Route: 042
     Dates: start: 201303
  9. HYDROCHLOROTHIAZIDE [Suspect]
     Indication: BLOOD PRESSURE
     Dosage: UNK
     Route: 042
     Dates: end: 20130404
  10. ENALAPRIL /00574902/ [Suspect]
     Indication: BLOOD PRESSURE
     Dosage: UNK
     Route: 042
     Dates: end: 20130404
  11. CHOLECALCIFEROL [Concomitant]
     Dosage: UNK
  12. TYLENOL                            /00020001/ [Concomitant]
     Dosage: UNK UNK, AS REQUIRED
  13. ANUSOL-HC                          /00028604/ [Concomitant]
     Indication: HAEMORRHOIDS
     Dosage: UNK
  14. LUTEIN                             /06447201/ [Concomitant]
     Dosage: UNK
  15. OXAZEPAM [Concomitant]
     Indication: ANXIETY
     Dosage: UNK
  16. FLUTICASONE [Concomitant]
     Indication: UPPER-AIRWAY COUGH SYNDROME
     Dosage: UNK
  17. FLUTICASONE [Concomitant]
     Indication: SEASONAL ALLERGY
  18. SERTRALINE                         /01011402/ [Concomitant]
     Dosage: UNK
  19. PROCHLORPERAZINE [Concomitant]
     Indication: NAUSEA
     Dosage: UNK

REACTIONS (4)
  - Death [Fatal]
  - Febrile neutropenia [Recovering/Resolving]
  - Drug ineffective [Unknown]
  - Blood pressure decreased [Unknown]
